FAERS Safety Report 20435902 (Version 1)
Quarter: 2022Q1

REPORT INFORMATION
  Report Type: Other
  Country: CA (occurrence: None)
  Receive Date: 20220207
  Receipt Date: 20220207
  Transmission Date: 20220424
  Serious: Yes (Other)
  Sender: FDA-Public Use
  Company Number: CA-ROCHE-1521563

PATIENT
  Age: 75 Year
  Sex: Male

DRUGS (13)
  1. ACTEMRA [Suspect]
     Active Substance: TOCILIZUMAB
     Indication: Polymyalgia rheumatica
     Dosage: EVERY OTHER WEEK
     Route: 058
     Dates: start: 20150113
  2. ACTEMRA [Suspect]
     Active Substance: TOCILIZUMAB
     Indication: Giant cell arteritis
  3. METHOTREXATE [Concomitant]
     Active Substance: METHOTREXATE
  4. PREDNISONE [Concomitant]
     Active Substance: PREDNISONE
  5. PREDNISONE [Concomitant]
     Active Substance: PREDNISONE
  6. PLAVIX [Concomitant]
     Active Substance: CLOPIDOGREL BISULFATE
  7. HYDROCHLOROTHIAZIDE [Concomitant]
     Active Substance: HYDROCHLOROTHIAZIDE
  8. NIFEDIPINE [Concomitant]
     Active Substance: NIFEDIPINE
  9. DOMPERIDONE [Concomitant]
     Active Substance: DOMPERIDONE
  10. PLAQUENIL [Concomitant]
     Active Substance: HYDROXYCHLOROQUINE SULFATE
  11. MODAFINIL [Concomitant]
     Active Substance: MODAFINIL
  12. TRAZODONE [Concomitant]
     Active Substance: TRAZODONE HYDROCHLORIDE
  13. AMITRIPTYLINE [Concomitant]
     Active Substance: AMITRIPTYLINE

REACTIONS (11)
  - Atypical pneumonia [Unknown]
  - Infusion related reaction [Recovered/Resolved]
  - Dizziness [Not Recovered/Not Resolved]
  - Asthenia [Unknown]
  - Oesophagitis [Unknown]
  - Weight decreased [Unknown]
  - C-reactive protein increased [Unknown]
  - Rheumatoid arthritis [Recovered/Resolved]
  - Arthralgia [Not Recovered/Not Resolved]
  - Off label use [Unknown]
  - Skin laceration [Unknown]

NARRATIVE: CASE EVENT DATE: 20150113
